FAERS Safety Report 10721973 (Version 1)
Quarter: 2015Q1

REPORT INFORMATION
  Report Type: Spontaneous
  Country: US (occurrence: US)
  Receive Date: 20150119
  Receipt Date: 20150119
  Transmission Date: 20150721
  Serious: Yes (Hospitalization, Other)
  Sender: FDA-Public Use
  Company Number: US-BAYER-2015-004926

PATIENT
  Age: 6 Year
  Sex: Male

DRUGS (1)
  1. BAYER GENUINE ASPIRIN [Suspect]
     Active Substance: ASPIRIN
     Indication: PHARYNGITIS STREPTOCOCCAL
     Dosage: 3 DF, Q2HR
     Route: 048
     Dates: start: 1970, end: 1970

REACTIONS (5)
  - Medication error [Unknown]
  - Hallucination [Recovered/Resolved]
  - Drug administered to patient of inappropriate age [Unknown]
  - Extra dose administered [Unknown]
  - Myocardial infarction [Recovered/Resolved]

NARRATIVE: CASE EVENT DATE: 1970
